FAERS Safety Report 18008078 (Version 4)
Quarter: 2020Q3

REPORT INFORMATION
  Report Type: Report from Study
  Country: None (occurrence: US)
  Receive Date: 20200710
  Receipt Date: 20200828
  Transmission Date: 20201103
  Serious: Yes (Hospitalization, Other)
  Sender: FDA-Public Use
  Company Number: US-ABBVIE-20P-163-3476958-00

PATIENT
  Age: 70 Year
  Sex: Female
  Weight: 59.7 kg

DRUGS (12)
  1. IBRUTINIB [Suspect]
     Active Substance: IBRUTINIB
     Dosage: D1?28, CYCLES 1?19
     Route: 048
     Dates: start: 20200520, end: 20200526
  2. OBINUTUZUMAB. [Concomitant]
     Active Substance: OBINUTUZUMAB
     Indication: CHRONIC LYMPHOCYTIC LEUKAEMIA
     Dosage: D1, CYCLE 1
     Route: 042
     Dates: start: 20200219, end: 20200219
  3. OBINUTUZUMAB. [Concomitant]
     Active Substance: OBINUTUZUMAB
     Dosage: D2, CYCLE 1
     Route: 042
     Dates: start: 2020, end: 2020
  4. VENETOCLAX. [Suspect]
     Active Substance: VENETOCLAX
     Indication: CHRONIC LYMPHOCYTIC LEUKAEMIA
     Dosage: D1?7 CYCLE 3
     Route: 048
     Dates: start: 2020, end: 2020
  5. VENETOCLAX. [Suspect]
     Active Substance: VENETOCLAX
     Dosage: D22?28, CYCLE 3
     Route: 048
     Dates: start: 2020, end: 2020
  6. OBINUTUZUMAB. [Concomitant]
     Active Substance: OBINUTUZUMAB
     Dosage: D8 + 15, CYCLE 1
     Route: 042
     Dates: start: 2020, end: 2020
  7. VENETOCLAX. [Suspect]
     Active Substance: VENETOCLAX
     Dosage: D1?28, CYCLES 4?14
     Route: 048
     Dates: start: 2020, end: 20200520
  8. IBRUTINIB [Suspect]
     Active Substance: IBRUTINIB
     Indication: CHRONIC LYMPHOCYTIC LEUKAEMIA
     Dosage: D1?28, CYCLES 1?19
     Route: 048
     Dates: start: 20200219, end: 20200520
  9. VENETOCLAX. [Suspect]
     Active Substance: VENETOCLAX
     Dosage: D15?21, CYCLE 3
     Route: 048
     Dates: start: 2020, end: 2020
  10. VENETOCLAX. [Suspect]
     Active Substance: VENETOCLAX
     Dosage: D8?14, CYCLE 3
     Route: 048
     Dates: start: 2020, end: 2020
  11. VENETOCLAX. [Suspect]
     Active Substance: VENETOCLAX
     Route: 048
     Dates: start: 20200702, end: 20200707
  12. OBINUTUZUMAB. [Concomitant]
     Active Substance: OBINUTUZUMAB
     Dosage: D1, CYCLE 2?6
     Route: 042
     Dates: start: 2020

REACTIONS (9)
  - Pneumonia [Recovered/Resolved]
  - Neutrophil count decreased [Recovered/Resolved]
  - Pneumonia [Recovered/Resolved]
  - Febrile neutropenia [Recovered/Resolved]
  - Haemorrhage intracranial [Recovered/Resolved]
  - Neutrophil count decreased [Recovered/Resolved]
  - Pneumonitis [Recovered/Resolved]
  - Platelet count decreased [Recovered/Resolved]
  - Neutrophil count decreased [Recovered/Resolved]

NARRATIVE: CASE EVENT DATE: 20200513
